FAERS Safety Report 11983514 (Version 2)
Quarter: 2016Q1

REPORT INFORMATION
  Report Type: Report from Study
  Country: US (occurrence: US)
  Receive Date: 20160201
  Receipt Date: 20160303
  Transmission Date: 20160526
  Serious: Yes (Hospitalization)
  Sender: FDA-Public Use
  Company Number: US-JNJFOC-20160123380

PATIENT
  Age: 55 Year
  Sex: Male

DRUGS (9)
  1. IMBRUVICA [Suspect]
     Active Substance: IBRUTINIB
     Indication: CHRONIC LYMPHOCYTIC LEUKAEMIA
     Route: 048
     Dates: start: 20140308, end: 201602
  2. ATIVAN [Concomitant]
     Active Substance: LORAZEPAM
  3. ALLOPURINOL. [Concomitant]
     Active Substance: ALLOPURINOL
  4. REMERON [Concomitant]
     Active Substance: MIRTAZAPINE
  5. NORVASC [Concomitant]
     Active Substance: AMLODIPINE BESYLATE
  6. LABETALOL [Concomitant]
     Active Substance: LABETALOL\LABETALOL HYDROCHLORIDE
  7. IMBRUVICA [Suspect]
     Active Substance: IBRUTINIB
     Indication: CHRONIC LYMPHOCYTIC LEUKAEMIA
     Route: 048
     Dates: start: 201602
  8. MORNIFLUMATE [Concomitant]
     Active Substance: MORNIFLUMATE
  9. PRILOSEC [Concomitant]
     Active Substance: OMEPRAZOLE MAGNESIUM

REACTIONS (3)
  - Incorrect dose administered [Not Recovered/Not Resolved]
  - Off label use [Unknown]
  - Adverse event [Unknown]

NARRATIVE: CASE EVENT DATE: 20140308
